FAERS Safety Report 4999919-2 (Version None)
Quarter: 2006Q2

REPORT INFORMATION
  Report Type: 
  Country: None (occurrence: None)
  Receive Date: 20060509
  Receipt Date: 20060427
  Transmission Date: 20061013
  Serious: Yes (Other)
  Sender: FDA-Public Use
  Company Number: 2006-BP-04823RO

PATIENT
  Age: 14 Month
  Sex: Male

DRUGS (4)
  1. DEXAMETHASONE [Suspect]
     Indication: ACUTE LYMPHOCYTIC LEUKAEMIA
  2. VINCRISTINE [Suspect]
     Indication: ACUTE LYMPHOCYTIC LEUKAEMIA
  3. PEG L-ASPARAGINASE (PEGASPARGASE) [Suspect]
     Indication: ACUTE LYMPHOCYTIC LEUKAEMIA
  4. FUROSEMIDE [Suspect]
     Indication: ANURIA
     Dosage: UP TO 6 MG/KG

REACTIONS (9)
  - ANURIA [None]
  - DISEASE RECURRENCE [None]
  - HAEMODIALYSIS [None]
  - HYPERKALAEMIA [None]
  - HYPERTENSION [None]
  - KIDNEY ENLARGEMENT [None]
  - OBSTRUCTIVE UROPATHY [None]
  - PSEUDOMONAS INFECTION [None]
  - RENAL FAILURE ACUTE [None]
